FAERS Safety Report 9211156 (Version 1)
Quarter: 2013Q2

REPORT INFORMATION
  Report Type: Spontaneous
  Country: US (occurrence: US)
  Receive Date: 20130404
  Receipt Date: 20130404
  Transmission Date: 20140414
  Serious: Yes (Hospitalization)
  Sender: FDA-Public Use
  Company Number: US-PFIZER INC-2013105445

PATIENT
  Age: 72 Year
  Sex: Female

DRUGS (8)
  1. BENICAR [Suspect]
     Dosage: UNK
     Route: 048
  2. METFORMIN HCL [Suspect]
     Indication: TYPE 2 DIABETES MELLITUS
     Dosage: 2000 MG, UNK
  3. LISINOPRIL [Suspect]
     Dosage: UNK
  4. VERAPAMIL HCL [Suspect]
     Dosage: UNK
  5. SAXAGLIPTIN [Suspect]
     Indication: TYPE 2 DIABETES MELLITUS
     Dosage: UNK
     Dates: start: 20100709, end: 20130114
  6. PLACEBO [Suspect]
     Indication: TYPE 2 DIABETES MELLITUS
     Dosage: UNK
     Dates: start: 20100709, end: 20130114
  7. LEVEMIR [Suspect]
     Indication: TYPE 2 DIABETES MELLITUS
     Dosage: 20 IU, UNK
  8. HYDROCHLOROTHIAZIDE [Suspect]
     Dosage: UNK

REACTIONS (6)
  - Accidental exposure to product [Recovered/Resolved]
  - Hypotension [Recovered/Resolved]
  - Nausea [Recovered/Resolved]
  - Vomiting [Recovered/Resolved]
  - Diarrhoea [Recovered/Resolved]
  - Decreased appetite [Recovered/Resolved]
